FAERS Safety Report 11614567 (Version 1)
Quarter: 2015Q4

REPORT INFORMATION
  Report Type: Spontaneous
  Country: VE (occurrence: VE)
  Receive Date: 20151009
  Receipt Date: 20151009
  Transmission Date: 20160304
  Serious: Yes (Hospitalization, Other)
  Sender: FDA-Public Use
  Company Number: VE-ORION CORPORATION ORION PHARMA-ENTC2015-0559

PATIENT
  Sex: Female

DRUGS (3)
  1. COMENTER [Concomitant]
     Route: 065
     Dates: start: 2014
  2. STALEVO [Suspect]
     Active Substance: CARBIDOPA\ENTACAPONE\LEVODOPA
     Indication: PARKINSON^S DISEASE
     Route: 048
     Dates: start: 2012
  3. MIRAPEX [Concomitant]
     Active Substance: PRAMIPEXOLE DIHYDROCHLORIDE
     Route: 065
     Dates: start: 2012

REACTIONS (3)
  - Insomnia [Recovering/Resolving]
  - Parkinson^s disease [Recovering/Resolving]
  - Localised infection [Recovering/Resolving]
